FAERS Safety Report 18154930 (Version 5)
Quarter: 2020Q4

REPORT INFORMATION
  Report Type: Spontaneous
  Country: US (occurrence: US)
  Receive Date: 20200817
  Receipt Date: 20201029
  Transmission Date: 20210113
  Serious: No
  Sender: FDA-Public Use
  Company Number: US-BIOGEN-2020BI00900301

PATIENT
  Age: 59 Year
  Sex: Female

DRUGS (14)
  1. AVONEX PEN [Suspect]
     Active Substance: INTERFERON BETA-1A
     Route: 065
     Dates: start: 20010801
  2. BUPROPION. [Concomitant]
     Active Substance: BUPROPION
     Route: 065
  3. MONTELUKAST [Concomitant]
     Active Substance: MONTELUKAST SODIUM
     Route: 065
  4. AVONEX PEN [Suspect]
     Active Substance: INTERFERON BETA-1A
  5. OXYCODONE AND ACETAMINOPHEN [Concomitant]
     Active Substance: ACETAMINOPHEN\OXYCODONE HYDROCHLORIDE
     Route: 065
  6. AVONEX PEN [Suspect]
     Active Substance: INTERFERON BETA-1A
     Indication: MULTIPLE SCLEROSIS
     Route: 030
     Dates: start: 20200320
  7. CEPHALEXIN. [Concomitant]
     Active Substance: CEPHALEXIN
     Route: 065
  8. METHYLPRED [Concomitant]
     Active Substance: METHYLPREDNISOLONE
     Route: 065
  9. CELEBREX [Concomitant]
     Active Substance: CELECOXIB
     Indication: PRODUCT USED FOR UNKNOWN INDICATION
     Route: 065
  10. SINGULAIR [Concomitant]
     Active Substance: MONTELUKAST SODIUM
     Indication: PRODUCT USED FOR UNKNOWN INDICATION
     Route: 065
  11. CELECOXIB. [Concomitant]
     Active Substance: CELECOXIB
     Route: 065
  12. DEXILANT [Concomitant]
     Active Substance: DEXLANSOPRAZOLE
     Route: 065
  13. AVONEX PEN [Suspect]
     Active Substance: INTERFERON BETA-1A
  14. SMZ/TMP [Concomitant]
     Active Substance: SULFAMETHOXAZOLE\TRIMETHOPRIM
     Route: 065

REACTIONS (7)
  - Injection site pain [Recovered/Resolved]
  - Somnolence [Unknown]
  - Drug delivery system malfunction [Unknown]
  - Fatigue [Not Recovered/Not Resolved]
  - Injection site inflammation [Not Recovered/Not Resolved]
  - Product administered at inappropriate site [Unknown]
  - Injection site mass [Recovered/Resolved]

NARRATIVE: CASE EVENT DATE: 20200805
